FAERS Safety Report 18239151 (Version 1)
Quarter: 2020Q3

REPORT INFORMATION
  Report Type: Spontaneous
  Country: FR (occurrence: FR)
  Receive Date: 20200907
  Receipt Date: 20200907
  Transmission Date: 20201103
  Serious: Yes (Hospitalization)
  Sender: FDA-Public Use
  Company Number: NVSC2020FR240844

PATIENT
  Age: 78 Year
  Sex: Male
  Weight: 70 kg

DRUGS (6)
  1. DEXAFREE [Suspect]
     Active Substance: DEXAMETHASONE SODIUM PHOSPHATE
     Indication: CATARACT OPERATION
     Dosage: 3 DRP
     Route: 047
     Dates: start: 20200811
  2. AZYTER [Suspect]
     Active Substance: AZITHROMYCIN ANHYDROUS
     Indication: CATARACT OPERATION
     Dosage: 2 DRP
     Route: 047
     Dates: start: 20200811, end: 20200813
  3. APROKAM [Suspect]
     Active Substance: CEFUROXIME SODIUM
     Indication: CATARACT OPERATION
     Dosage: 1 DF (1 INJECTION)
     Route: 047
     Dates: start: 20200811, end: 20200811
  4. MYDRIATICUM [Suspect]
     Active Substance: TROPICAMIDE
     Indication: CATARACT OPERATION
     Dosage: 1 DRP
     Route: 047
     Dates: start: 20200811
  5. INDOCOLLYRE [Suspect]
     Active Substance: INDOMETHACIN
     Indication: CATARACT OPERATION
     Dosage: 1 DRP
     Route: 047
     Dates: start: 20200811
  6. MYDRIASERT [Suspect]
     Active Substance: PHENYLEPHRINE HYDROCHLORIDE\TROPICAMIDE
     Indication: CATARACT OPERATION
     Dosage: 1 DF
     Route: 047
     Dates: start: 20200811, end: 20200811

REACTIONS (1)
  - Endophthalmitis [Not Recovered/Not Resolved]

NARRATIVE: CASE EVENT DATE: 20200813
